FAERS Safety Report 12722255 (Version 1)
Quarter: 2016Q3

REPORT INFORMATION
  Report Type: Spontaneous
  Country: US (occurrence: US)
  Receive Date: 20160907
  Receipt Date: 20160907
  Transmission Date: 20161109
  Serious: Yes (Other)
  Sender: FDA-Public Use
  Company Number: US-PFIZER INC-2016401554

PATIENT
  Sex: Male
  Weight: 83 kg

DRUGS (1)
  1. DRISTAN COLD MULTISYMPTOM [Suspect]
     Active Substance: ACETAMINOPHEN\CHLORPHENIRAMINE MALEATE\PHENYLEPHRINE HYDROCHLORIDE
     Dosage: UNK

REACTIONS (2)
  - Drug dependence [Unknown]
  - Intentional product use issue [Unknown]
